FAERS Safety Report 11185550 (Version 3)
Quarter: 2015Q4

REPORT INFORMATION
  Report Type: Spontaneous
  Country: US (occurrence: US)
  Receive Date: 20150612
  Receipt Date: 20151019
  Transmission Date: 20160304
  Serious: Yes (Death, Other)
  Sender: FDA-Public Use
  Company Number: US-PFIZER INC-2015195558

PATIENT
  Age: 58 Year
  Sex: Female
  Weight: 89.8 kg

DRUGS (7)
  1. CEFTRIAXONE. [Suspect]
     Active Substance: CEFTRIAXONE
     Indication: SINUSITIS
     Dosage: 1 G, SINGLE
     Route: 030
     Dates: start: 20150602, end: 20150602
  2. DEPO-MEDROL [Suspect]
     Active Substance: METHYLPREDNISOLONE ACETATE
     Indication: SINUSITIS
     Dosage: 100 MG, SINGLE
     Route: 030
     Dates: start: 20150602, end: 20150602
  3. EPIPEN [Suspect]
     Active Substance: EPINEPHRINE
     Indication: ANAPHYLACTIC REACTION
     Dosage: 0.3 MG, UNK
     Route: 030
     Dates: start: 20150602, end: 20150602
  4. CYANOCOBALAMIN. [Concomitant]
     Active Substance: CYANOCOBALAMIN
     Dosage: 1000 ?G, SINGLE
  5. LIDOCAINE HCL [Suspect]
     Active Substance: LIDOCAINE HYDROCHLORIDE
     Indication: SINUSITIS
     Dosage: UNK, DILUTE WITH CEFTRIAXONE, IN LEFT BUTTOCK
     Route: 030
     Dates: start: 20150602, end: 20150602
  6. CYANOCOBALAMIN. [Concomitant]
     Active Substance: CYANOCOBALAMIN
     Indication: FATIGUE
     Dosage: UNK
  7. VITAMIN B12 [Suspect]
     Active Substance: CYANOCOBALAMIN
     Dosage: UNK
     Route: 030

REACTIONS (8)
  - Condition aggravated [Fatal]
  - Loss of consciousness [Unknown]
  - Injection site pruritus [Unknown]
  - Cardiac arrest [Fatal]
  - Anaphylactic shock [Fatal]
  - Blindness [Fatal]
  - Sinusitis [Unknown]
  - Anaphylactic reaction [Fatal]

NARRATIVE: CASE EVENT DATE: 20150602
